FAERS Safety Report 11633153 (Version 1)
Quarter: 2015Q4

REPORT INFORMATION
  Report Type: Spontaneous
  Country: US (occurrence: US)
  Receive Date: 20151015
  Receipt Date: 20151015
  Transmission Date: 20160304
  Serious: No
  Sender: FDA-Public Use
  Company Number: US-BAYER-2015-443751

PATIENT
  Age: 37 Year
  Sex: Female
  Weight: 68.27 kg

DRUGS (1)
  1. CLARITIN [Suspect]
     Active Substance: LORATADINE
     Indication: SEASONAL ALLERGY
     Dosage: 1 DF, QD
     Route: 048
     Dates: start: 201510, end: 20151011

REACTIONS (2)
  - Dysgeusia [Recovered/Resolved]
  - Drug ineffective [None]
